FAERS Safety Report 7266117-1 (Version None)
Quarter: 2011Q1

REPORT INFORMATION
  Report Type: 
  Country: None (occurrence: None)
  Receive Date: 20110131
  Receipt Date: 20110125
  Transmission Date: 20110831
  Serious: No
  Sender: FDA-Public Use
  Company Number: US-PFIZER INC-2011009847

PATIENT
  Age: 74 Year
  Sex: Female

DRUGS (2)
  1. ADVIL [Suspect]
     Indication: ARTHRITIS
     Dosage: 1 TABLET, 1X/DAY
     Route: 048
     Dates: start: 20101101, end: 20101101
  2. ALEVE [Suspect]
     Dosage: UNK

REACTIONS (2)
  - RASH [None]
  - BLISTER [None]
